FAERS Safety Report 9850276 (Version 1)
Quarter: 2014Q1

REPORT INFORMATION
  Report Type: Spontaneous
  Country: JP (occurrence: JP)
  Receive Date: 20140128
  Receipt Date: 20140128
  Transmission Date: 20141002
  Serious: Yes (Other)
  Sender: FDA-Public Use
  Company Number: JP-VIIV HEALTHCARE LIMITED-B0947252A

PATIENT
  Age: 39 Year
  Sex: Male

DRUGS (7)
  1. EPZICOM [Suspect]
     Indication: HIV INFECTION
     Dosage: 1IUAX PER DAY
     Route: 048
  2. ISENTRESS [Concomitant]
     Indication: HIV INFECTION
     Dosage: 1IUAX TWICE PER DAY
     Route: 048
  3. RITUXIMAB [Concomitant]
     Route: 042
  4. CYCLOPHOSPHAMIDE HYDRATE [Concomitant]
     Route: 065
  5. DOXORUBICIN HYDROCHLORIDE [Concomitant]
     Route: 042
  6. VINCRISTINE SULFATE [Concomitant]
     Route: 042
  7. PREDNISOLONE [Concomitant]
     Route: 065

REACTIONS (1)
  - Febrile neutropenia [Recovered/Resolved]
